FAERS Safety Report 17174202 (Version 2)
Quarter: 2019Q4

REPORT INFORMATION
  Report Type: Report from Study
  Country: GR (occurrence: GR)
  Receive Date: 20191219
  Receipt Date: 20191227
  Transmission Date: 20200122
  Serious: Yes (Hospitalization)
  Sender: FDA-Public Use
  Company Number: GR-BAUSCH-BL-2019-065029

PATIENT
  Age: 79 Year
  Sex: Male
  Weight: 82 kg

DRUGS (1)
  1. KYNTHEUM [Suspect]
     Active Substance: BRODALUMAB
     Indication: PSORIASIS
     Dosage: 210 MG IN WEEK 0, 1, 2 AND THEN EVERY TWO WEEKS
     Route: 058
     Dates: start: 20190703, end: 20191204

REACTIONS (3)
  - Pyrexia [Recovering/Resolving]
  - Skin irritation [Recovering/Resolving]
  - Pruritus [Recovering/Resolving]

NARRATIVE: CASE EVENT DATE: 20191204
